FAERS Safety Report 10404201 (Version 1)
Quarter: 2014Q1

REPORT INFORMATION
  Report Type: Spontaneous
  Country: US (occurrence: None)
  Receive Date: 20131226
  Receipt Date: 20131226
  Transmission Date: 20141002
  Serious: Yes (Other)
  Sender: FDA-Public Use
  Company Number: PHEH2012US001327

PATIENT
  Age: 57 Year
  Sex: Male

DRUGS (4)
  1. DIOVAN (VALSARTAN) [Suspect]
     Dates: start: 201010
  2. TOPRAL (METOPROLOL SUCCINATE) [Concomitant]
  3. ZOCOR (SIMVASTATIN) [Concomitant]
  4. FLOMAX (TAMSULOSIN HYDROCHLORIDE) [Concomitant]

REACTIONS (3)
  - Blood pressure fluctuation [None]
  - Drug intolerance [None]
  - Dizziness [None]
